FAERS Safety Report 8529792-7 (Version None)
Quarter: 2012Q3

REPORT INFORMATION
  Report Type: 
  Country: None (occurrence: None)
  Receive Date: 20120710
  Receipt Date: 20120627
  Transmission Date: 20120928
  Serious: Yes (Hospitalization)
  Sender: FDA-Public Use
  Company Number: 2012FR0230

PATIENT
  Age: 41 Year
  Sex: Male

DRUGS (2)
  1. KINERET [Suspect]
     Indication: JUVENILE ARTHRITIS
     Dosage: 100 MG (100 MG,1 IN 1 D),SUBCUTANEOUS
     Route: 058
     Dates: start: 20040101, end: 20120401
  2. RANITIDINE HCL [Suspect]
     Dosage: 1 DOSAGE FORMS (1 DOSAGE FORMS,1 IN 1 D) ORAL
     Route: 048
     Dates: start: 20120328, end: 20120330

REACTIONS (16)
  - CHEST PAIN [None]
  - PERICARDITIS [None]
  - DRUG INEFFECTIVE [None]
  - RASH MACULO-PAPULAR [None]
  - PYREXIA [None]
  - SELF-MEDICATION [None]
  - HAEMOGLOBIN DECREASED [None]
  - NEUTROPENIA [None]
  - THROMBOCYTOPENIA [None]
  - HISTIOCYTOSIS HAEMATOPHAGIC [None]
  - HYPERTENSION [None]
  - MYALGIA [None]
  - INFLAMMATION [None]
  - RASH PRURITIC [None]
  - JOINT STIFFNESS [None]
  - ODYNOPHAGIA [None]
